FAERS Safety Report 7596089-1 (Version None)
Quarter: 2011Q3

REPORT INFORMATION
  Report Type: 
  Country: None (occurrence: None)
  Receive Date: 20110707
  Receipt Date: 20110704
  Transmission Date: 20111222
  Serious: Yes (Hospitalization, Other)
  Sender: FDA-Public Use
  Company Number: DE-AMGEN-DEUSP2011008748

PATIENT
  Age: 72 Year
  Sex: Female
  Weight: 95 kg

DRUGS (6)
  1. NPLATE [Suspect]
  2. NPLATE [Suspect]
  3. NPLATE [Suspect]
     Indication: IDIOPATHIC THROMBOCYTOPENIC PURPURA
     Dosage: 0.54 UNK, UNK
     Dates: start: 20110124
  4. PREDNISONE [Concomitant]
  5. NPLATE [Suspect]
  6. INSULIN [Concomitant]

REACTIONS (3)
  - DEEP VEIN THROMBOSIS [None]
  - PULMONARY THROMBOSIS [None]
  - THROMBOCYTOSIS [None]
